FAERS Safety Report 14638014 (Version 1)
Quarter: 2018Q1

REPORT INFORMATION
  Report Type: Spontaneous
  Country: US (occurrence: US)
  Receive Date: 20180314
  Receipt Date: 20180314
  Transmission Date: 20180509
  Serious: No
  Sender: FDA-Public Use
  Company Number: US-VYERA PHARMACEUTICALS, LLC-2017TNG00031

PATIENT
  Age: 40 Year
  Sex: Male
  Weight: 85.71 kg

DRUGS (4)
  1. LEUCOVORIN (TEVA) [Suspect]
     Active Substance: LEUCOVORIN
     Dosage: 25 MG, 1X/DAY
  2. SULFADIAZINE (SANDOZ) [Suspect]
     Active Substance: SULFADIAZINE
     Indication: TOXOPLASMOSIS
     Dosage: 1500 MG, 4X/DAY
     Route: 048
     Dates: start: 20170615
  3. GENVOYA [Concomitant]
     Active Substance: COBICISTAT\ELVITEGRAVIR\EMTRICITABINE\TENOFOVIR ALAFENAMIDE FUMARATE
     Dosage: UNK, 1X/DAY
     Dates: start: 20170524
  4. DARAPRIM [Suspect]
     Active Substance: PYRIMETHAMINE
     Indication: TOXOPLASMOSIS
     Dosage: 75 MG, 1X/DAY
     Route: 048
     Dates: start: 20170615

REACTIONS (1)
  - Pruritus [Not Recovered/Not Resolved]

NARRATIVE: CASE EVENT DATE: 20170616
